FAERS Safety Report 8889333 (Version 1)
Quarter: 2012Q4

REPORT INFORMATION
  Report Type: Spontaneous
  Country: US (occurrence: None)
  Receive Date: 20121102
  Receipt Date: 20121102
  Transmission Date: 20130627
  Serious: Yes (Hospitalization)
  Sender: FDA-Public Use
  Company Number: None

PATIENT
  Age: 78 Year
  Sex: Female
  Weight: 98.6 kg

DRUGS (1)
  1. RIVAROXABAN [Suspect]
     Indication: VENOUS THROMBOEMBOLISM PROPHYLAXIS
     Dosage: 10mg Daily po
     Route: 048
     Dates: start: 20121023, end: 20121025

REACTIONS (2)
  - Pulmonary embolism [None]
  - Hypotension [None]
